FAERS Safety Report 24881633 (Version 2)
Quarter: 2025Q1

REPORT INFORMATION
  Report Type: Report from Study
  Country: IN (occurrence: IN)
  Receive Date: 20250124
  Receipt Date: 20250218
  Transmission Date: 20250409
  Serious: Yes (Other)
  Sender: ROCHE
  Company Number: IN-ROCHE-10000185897

PATIENT
  Age: 61 Year
  Sex: Male
  Weight: 65 kg

DRUGS (1)
  1. POLIVY [Suspect]
     Active Substance: POLATUZUMAB VEDOTIN-PIIQ
     Indication: Diffuse large B-cell lymphoma
     Route: 040
     Dates: start: 20241207

REACTIONS (6)
  - Off label use [Unknown]
  - Hepatic cyst [Unknown]
  - Malignant splenic neoplasm [Unknown]
  - Lymphadenopathy [Unknown]
  - Hepatic lesion [Unknown]
  - Splenic lesion [Unknown]
